FAERS Safety Report 5124703-9 (Version None)
Quarter: 2006Q4

REPORT INFORMATION
  Report Type: 
  Country: None (occurrence: None)
  Receive Date: 20061006
  Receipt Date: 20061006
  Transmission Date: 20070319
  Serious: No
  Sender: FDA-Public Use
  Company Number: None

PATIENT
  Age: 44 Year
  Sex: Male
  Weight: 127.0072 kg

DRUGS (1)
  1. TRIAMCINOLONE ACETONIDE [Suspect]
     Indication: PRURITUS
     Dosage: THIN LAYER 4 TIMES PER DAY TOP
     Route: 061
     Dates: start: 20060101

REACTIONS (2)
  - APPLICATION SITE ATROPHY [None]
  - APPLICATION SITE BLEEDING [None]
